FAERS Safety Report 8257123-9 (Version None)
Quarter: 2012Q1

REPORT INFORMATION
  Report Type: 
  Country: None (occurrence: None)
  Receive Date: 20120330
  Receipt Date: 20120330
  Transmission Date: 20120608
  Serious: Yes (Hospitalization)
  Sender: FDA-Public Use
  Company Number: None

PATIENT
  Age: 27 Year
  Sex: Male
  Weight: 53 kg

DRUGS (1)
  1. KINERET [Suspect]
     Indication: CHRONIC INFANTILE NEUROLOGICAL CUTANEOUS AND ARTICULAR SYNDROME
     Dosage: 5.5MG/KG/DAY D SC ANAKINRA/KINERET
     Route: 058

REACTIONS (10)
  - TENOSYNOVITIS [None]
  - OEDEMA [None]
  - CELLULITIS [None]
  - PYREXIA [None]
  - LYMPHADENOPATHY [None]
  - RED BLOOD CELL SEDIMENTATION RATE INCREASED [None]
  - WHITE BLOOD CELL COUNT INCREASED [None]
  - GOUT [None]
  - BONE MARROW OEDEMA [None]
  - C-REACTIVE PROTEIN INCREASED [None]
